FAERS Safety Report 19241386 (Version 1)
Quarter: 2021Q2

REPORT INFORMATION
  Report Type: Report from Study
  Country: BR (occurrence: BR)
  Receive Date: 20210511
  Receipt Date: 20210511
  Transmission Date: 20210717
  Serious: Yes (Other)
  Sender: FDA-Public Use
  Company Number: BR-BRISTOL-MYERS SQUIBB COMPANY-BMS-2021-044742

PATIENT
  Age: 72 Year
  Sex: Female

DRUGS (2)
  1. CORONAVAC [Concomitant]
     Active Substance: INVESTIGATIONAL PRODUCT
     Indication: IMMUNISATION
     Dosage: UNK
     Route: 065
     Dates: start: 20210318, end: 20210318
  2. ABATACEPT [Suspect]
     Active Substance: ABATACEPT
     Indication: RHEUMATOID ARTHRITIS
     Dosage: 250 MILLIGRAM, QMO
     Route: 042

REACTIONS (3)
  - Cardiac valve disease [Unknown]
  - Abdominal pain [Recovering/Resolving]
  - Foot fracture [Unknown]
